FAERS Safety Report 9089262 (Version 1)
Quarter: 2013Q1

REPORT INFORMATION
  Report Type: Spontaneous
  Country: US (occurrence: US)
  Receive Date: 20130201
  Receipt Date: 20130201
  Transmission Date: 20140127
  Serious: No
  Sender: FDA-Public Use
  Company Number: US-PFIZER INC-2013037587

PATIENT
  Age: 53 Year
  Sex: Male
  Weight: 105.67 kg

DRUGS (5)
  1. VIAGRA [Suspect]
     Indication: SPINAL CORD INJURY
     Dosage: 50 MG, 1X/DAY
     Dates: start: 20100914
  2. VIAGRA [Suspect]
     Indication: ERECTILE DYSFUNCTION
  3. HYDROCODONE [Concomitant]
     Indication: PAIN IN EXTREMITY
     Dosage: UNK
  4. HYDROCODONE [Concomitant]
     Indication: PAIN IN EXTREMITY
  5. HYDROCODONE [Concomitant]
     Indication: ARTHRALGIA

REACTIONS (3)
  - Blood cholesterol increased [Unknown]
  - Pre-existing condition improved [Unknown]
  - Therapeutic response unexpected [Unknown]
